FAERS Safety Report 13717376 (Version 1)
Quarter: 2017Q3

REPORT INFORMATION
  Report Type: Spontaneous
  Country: US (occurrence: US)
  Receive Date: 20170705
  Receipt Date: 20170705
  Transmission Date: 20171127
  Serious: No
  Sender: FDA-Public Use
  Company Number: None

PATIENT
  Age: 64 Year
  Sex: Female
  Weight: 59.02 kg

DRUGS (4)
  1. AZELASTINE HCL NASAL [Suspect]
     Active Substance: AZELASTINE HYDROCHLORIDE
     Indication: VASOMOTOR RHINITIS
     Dosage: 1 SPRAY
     Route: 045
     Dates: start: 20170501, end: 20170623
  2. CENTRUM SILVER [Concomitant]
     Active Substance: MINERALS\VITAMINS
  3. FLONASE [Concomitant]
     Active Substance: FLUTICASONE PROPIONATE
  4. CALCIUM + D [Concomitant]
     Active Substance: CALCIUM\VITAMIN D

REACTIONS (2)
  - Dry eye [None]
  - Photophobia [None]
